FAERS Safety Report 7429702-X (Version None)
Quarter: 2011Q2

REPORT INFORMATION
  Report Type: 
  Country: None (occurrence: None)
  Receive Date: 20110421
  Receipt Date: 20110418
  Transmission Date: 20111010
  Serious: Yes (Hospitalization, Other)
  Sender: FDA-Public Use
  Company Number: FR-ROXANE LABORATORIES, INC.-2011-RO-00523RO

PATIENT
  Age: 20 Year
  Sex: Male

DRUGS (5)
  1. ZOFRAN [Suspect]
     Indication: VOMITING
     Dosage: 24 MG
     Route: 042
  2. MITOXANTRONE [Suspect]
     Indication: ACUTE LYMPHOCYTIC LEUKAEMIA RECURRENT
  3. VINCRISTINE [Suspect]
     Indication: ACUTE LYMPHOCYTIC LEUKAEMIA RECURRENT
  4. METHOTREXATE [Suspect]
     Indication: ACUTE LYMPHOCYTIC LEUKAEMIA RECURRENT
     Route: 037
  5. PEG-ASPARAGINASE [Suspect]
     Indication: ACUTE LYMPHOCYTIC LEUKAEMIA RECURRENT

REACTIONS (5)
  - NEUTROPENIA [None]
  - METABOLIC ENCEPHALOPATHY [None]
  - HYPERAMMONAEMIA [None]
  - VOMITING [None]
  - AMINO ACID LEVEL INCREASED [None]
